FAERS Safety Report 21909968 (Version 2)
Quarter: 2023Q1

REPORT INFORMATION
  Report Type: Spontaneous
  Country: AT (occurrence: AT)
  Receive Date: 20230125
  Receipt Date: 20230216
  Transmission Date: 20230418
  Serious: Yes (Life-Threatening)
  Sender: FDA-Public Use
  Company Number: None

PATIENT
  Sex: Male
  Weight: 95 kg

DRUGS (2)
  1. ERELZI [Suspect]
     Active Substance: ETANERCEPT-SZZS
     Indication: Psoriatic arthropathy
     Dosage: 50 MG, QW (WOCHENTLICH)
     Route: 058
     Dates: start: 201907
  2. ARAVA [Suspect]
     Active Substance: LEFLUNOMIDE
     Indication: Psoriatic arthropathy
     Dosage: 10 MG, QD (TAGLICH)
     Route: 065
     Dates: start: 202111

REACTIONS (1)
  - Glomerulonephritis membranous [Recovered/Resolved]

NARRATIVE: CASE EVENT DATE: 20221001
